FAERS Safety Report 6477521-3 (Version None)
Quarter: 2009Q4

REPORT INFORMATION
  Report Type: 
  Country: None (occurrence: None)
  Receive Date: 20091207
  Receipt Date: 20091126
  Transmission Date: 20100525
  Serious: Yes (Hospitalization)
  Sender: FDA-Public Use
  Company Number: JP-AMGEN-US377948

PATIENT
  Sex: Female
  Weight: 69 kg

DRUGS (8)
  1. ENBREL [Suspect]
     Indication: RHEUMATOID ARTHRITIS
     Route: 058
     Dates: start: 20090619, end: 20091018
  2. PREDNISOLONE [Suspect]
     Indication: RHEUMATOID ARTHRITIS
     Route: 048
     Dates: start: 20060501
  3. RHEUMATREX [Suspect]
     Indication: RHEUMATOID ARTHRITIS
     Route: 048
     Dates: start: 20070420, end: 20091013
  4. RHEUMATREX [Suspect]
     Dosage: UNKNOWN
     Dates: start: 20030401
  5. ACTONEL [Concomitant]
     Indication: OSTEOPOROSIS
     Route: 048
  6. LOXONIN [Concomitant]
     Indication: ANALGESIC THERAPY
     Route: 048
  7. MUCOSTA [Concomitant]
     Route: 048
  8. FOLIC ACID [Concomitant]
     Route: 048
     Dates: start: 20060818, end: 20091013

REACTIONS (1)
  - PNEUMOCYSTIS JIROVECI PNEUMONIA [None]
